FAERS Safety Report 7648575-3 (Version None)
Quarter: 2011Q3

REPORT INFORMATION
  Report Type: 
  Country: None (occurrence: None)
  Receive Date: 20110801
  Receipt Date: 20110728
  Transmission Date: 20111222
  Serious: Yes (Other)
  Sender: FDA-Public Use
  Company Number: US-PFIZER INC-2011172695

PATIENT
  Sex: Female
  Weight: 79.819 kg

DRUGS (5)
  1. EFFEXOR XR [Suspect]
     Indication: PANIC ATTACK
     Dosage: 75 MG, 1X/DAY
     Route: 048
     Dates: start: 20110701, end: 20110720
  2. PRISTIQ [Suspect]
     Indication: ANXIETY
  3. PRISTIQ [Suspect]
     Indication: PANIC ATTACK
     Dosage: 50 MG, 1X/DAY
     Route: 048
     Dates: start: 20110301, end: 20110630
  4. EFFEXOR XR [Suspect]
     Indication: ANXIETY
  5. METOPROLOL [Concomitant]
     Dosage: 25 MG, UNK

REACTIONS (8)
  - VERTIGO [None]
  - NAUSEA [None]
  - ANXIETY [None]
  - HYPERHIDROSIS [None]
  - HYPERTENSION [None]
  - DIZZINESS [None]
  - DRUG INEFFECTIVE [None]
  - DIARRHOEA [None]
